FAERS Safety Report 25022995 (Version 1)
Quarter: 2025Q1

REPORT INFORMATION
  Report Type: Spontaneous
  Country: US (occurrence: US)
  Receive Date: 20250228
  Receipt Date: 20250228
  Transmission Date: 20250409
  Serious: No
  Sender: TAKEDA
  Company Number: US-TAKEDA-2025TUS019170

PATIENT

DRUGS (1)
  1. TRINTELLIX [Suspect]
     Active Substance: VORTIOXETINE HYDROBROMIDE
     Indication: Major depression

REACTIONS (3)
  - Nervousness [Unknown]
  - Feeling jittery [Unknown]
  - Drug intolerance [Unknown]
